FAERS Safety Report 6116175-2 (Version None)
Quarter: 2009Q1

REPORT INFORMATION
  Report Type: 
  Country: None (occurrence: None)
  Receive Date: 20090314
  Receipt Date: 20081203
  Transmission Date: 20090719
  Serious: No
  Sender: FDA-Public Use
  Company Number: US-ABBOTT-08P-163-0490779-00

PATIENT
  Sex: Female
  Weight: 95.34 kg

DRUGS (3)
  1. HUMIRA [Suspect]
     Indication: CROHN'S DISEASE
     Route: 058
     Dates: start: 20081001
  2. HUMIRA [Suspect]
     Dosage: 4 - 40 MILLIGRAM PENS
  3. HUMIRA [Suspect]
     Dosage: 2 - 40 MILLIGRAM PENS

REACTIONS (4)
  - ABDOMINAL DISCOMFORT [None]
  - DIARRHOEA [None]
  - DRUG INEFFECTIVE [None]
  - MUSCLE SPASMS [None]
